FAERS Safety Report 6608711-4 (Version None)
Quarter: 2010Q1

REPORT INFORMATION
  Report Type: 
  Country: None (occurrence: None)
  Receive Date: 20100301
  Receipt Date: 20100215
  Transmission Date: 20100710
  Serious: Yes (Other)
  Sender: FDA-Public Use
  Company Number: PHHY2010US08978

PATIENT
  Age: 56 Year
  Sex: Male

DRUGS (1)
  1. PAMIDRONATE DISODIUM [Suspect]
     Indication: MULTIPLE MYELOMA
     Dosage: 90 MG, QMO

REACTIONS (10)
  - ACTINOMYCOSIS [None]
  - BONE DISORDER [None]
  - DEBRIDEMENT [None]
  - FISTULA [None]
  - IMPLANT SITE DISCHARGE [None]
  - IMPLANT SITE PAIN [None]
  - MEDICAL DEVICE REMOVAL [None]
  - ORAL SURGERY [None]
  - OSTEOMYELITIS BACTERIAL [None]
  - OSTEONECROSIS [None]
